FAERS Safety Report 12171051 (Version 2)
Quarter: 2017Q1

REPORT INFORMATION
  Report Type: Report from Study
  Country: ZA (occurrence: ZA)
  Receive Date: 20160311
  Receipt Date: 20170307
  Transmission Date: 20170428
  Serious: Yes (Hospitalization, Other)
  Sender: FDA-Public Use
  Company Number: PHHY2016ZA031754

PATIENT
  Age: 56 Year
  Sex: Female

DRUGS (2)
  1. ACLASTA [Suspect]
     Active Substance: ZOLEDRONIC ACID
     Indication: OSTEOPOROSIS
     Dosage: 1 DF, Q12MO (5 MG/100 ML ANNUALLY)
     Route: 041
     Dates: start: 201503
  2. ACLASTA [Suspect]
     Active Substance: ZOLEDRONIC ACID
     Dosage: 1 DF, Q12MO (5 MG/100 ML ANNUALLY)
     Route: 041
     Dates: start: 2016, end: 2016

REACTIONS (7)
  - Pathological fracture [Not Recovered/Not Resolved]
  - Bronchitis [Unknown]
  - Influenza like illness [Unknown]
  - Malaise [Unknown]
  - Fall [Recovering/Resolving]
  - Pelvic fracture [Recovering/Resolving]
  - Decreased immune responsiveness [Unknown]

NARRATIVE: CASE EVENT DATE: 201511
